FAERS Safety Report 26125992 (Version 1)
Quarter: 2025Q4

REPORT INFORMATION
  Report Type: Spontaneous
  Country: US (occurrence: None)
  Receive Date: 20251204
  Receipt Date: 20251204
  Transmission Date: 20260118
  Serious: Yes (Other)
  Sender: FDA-CTU
  Company Number: None

PATIENT
  Age: 54 Year
  Sex: Male
  Weight: 81 kg

DRUGS (5)
  1. TRINTELLIX [Suspect]
     Active Substance: VORTIOXETINE HYDROBROMIDE
     Indication: Depression
     Dosage: OTHER QUANTITY : 1 TABLET(S);?
     Route: 048
     Dates: start: 20251128, end: 20251204
  2. MEDROL [Concomitant]
     Active Substance: METHYLPREDNISOLONE
  3. METHOTREXATE [Concomitant]
     Active Substance: METHOTREXATE
  4. plaques [Concomitant]
  5. METOPROLOL [Concomitant]
     Active Substance: METOPROLOL

REACTIONS (12)
  - Gastrointestinal pain [None]
  - Nausea [None]
  - Headache [None]
  - Diarrhoea [None]
  - Anal incontinence [None]
  - Gastrointestinal motility disorder [None]
  - Flatulence [None]
  - Eructation [None]
  - Gastrointestinal sounds abnormal [None]
  - Pyrexia [None]
  - Muscle spasms [None]
  - Autonomic nervous system imbalance [None]

NARRATIVE: CASE EVENT DATE: 20251201
